FAERS Safety Report 20587351 (Version 10)
Quarter: 2022Q4

REPORT INFORMATION
  Report Type: Spontaneous
  Country: CA (occurrence: CA)
  Receive Date: 20220314
  Receipt Date: 20221214
  Transmission Date: 20230112
  Serious: Yes (Other)
  Sender: FDA-Public Use
  Company Number: CA-CELLTRION INC.-2021CA018712

PATIENT

DRUGS (12)
  1. INFLECTRA [Suspect]
     Active Substance: INFLIXIMAB-DYYB
     Indication: Crohn^s disease
     Dosage: 1100 MG, EVERY 5 WEEKS, SUPPOSED TO RECEIVE 10MG/KG
     Route: 042
     Dates: start: 20220121, end: 20220121
  2. INFLECTRA [Suspect]
     Active Substance: INFLIXIMAB-DYYB
     Dosage: 10 MG/KG EVERY 5 WEEKS(ROUND TO NEAREST 100 MG )
     Route: 042
     Dates: start: 20220121
  3. INFLECTRA [Suspect]
     Active Substance: INFLIXIMAB-DYYB
     Dosage: 10 MG/KG, EVERY 5 WEEKS, ROUND TO NEAREST 100 MG
     Route: 042
     Dates: start: 20220225
  4. INFLECTRA [Suspect]
     Active Substance: INFLIXIMAB-DYYB
     Dosage: 10 MG/KG, EVERY 5 WEEKS, ROUND TO NEAREST 100 MG
     Route: 042
     Dates: start: 20220225
  5. INFLECTRA [Suspect]
     Active Substance: INFLIXIMAB-DYYB
     Dosage: 10 MG/KG, EVERY 5 WEEKS, ROUND TO NEAREST 100 MG
     Route: 042
     Dates: start: 20220225
  6. INFLECTRA [Suspect]
     Active Substance: INFLIXIMAB-DYYB
     Dosage: 10 MG/KG, EVERY 5 WEEKS, ROUND TO NEAREST 100 MG
     Route: 042
     Dates: start: 20220401
  7. INFLECTRA [Suspect]
     Active Substance: INFLIXIMAB-DYYB
     Dosage: 1100 MG
     Route: 042
     Dates: start: 20220506, end: 20220506
  8. INFLECTRA [Suspect]
     Active Substance: INFLIXIMAB-DYYB
     Dosage: 10 MG/KG, EVERY 5 WEEKS, ROUND TO NEAREST 100 MG
     Route: 042
     Dates: start: 20220610
  9. INFLECTRA [Suspect]
     Active Substance: INFLIXIMAB-DYYB
     Dosage: 10 MG/KG, EVERY 5 WEEKS, ROUND TO NEAREST 100 MG
     Route: 042
     Dates: start: 20220715
  10. INFLECTRA [Suspect]
     Active Substance: INFLIXIMAB-DYYB
     Dosage: 10 MG/KG, EVERY 5 WEEKS, ROUND TO NEAREST 100 MG
     Route: 042
     Dates: start: 20220819
  11. INFLECTRA [Suspect]
     Active Substance: INFLIXIMAB-DYYB
     Dosage: 10 MG/KG, EVERY 5 WEEKS, ROUND TO NEAREST 100 MG
     Route: 042
     Dates: start: 20220923
  12. INFLECTRA [Suspect]
     Active Substance: INFLIXIMAB-DYYB
     Dosage: 10 MG/KG, EVERY 5 WEEKS, ROUND TO NEAREST 100 MG
     Route: 042
     Dates: start: 20221202

REACTIONS (15)
  - Abdominal pain lower [Unknown]
  - Condition aggravated [Recovered/Resolved]
  - COVID-19 [Unknown]
  - Mouth ulceration [Not Recovered/Not Resolved]
  - Hernia [Not Recovered/Not Resolved]
  - Hunger [Not Recovered/Not Resolved]
  - Flank pain [Not Recovered/Not Resolved]
  - Weight increased [Unknown]
  - Fatigue [Not Recovered/Not Resolved]
  - Malaise [Not Recovered/Not Resolved]
  - Pruritus [Recovering/Resolving]
  - Abdominal pain [Unknown]
  - Off label use [Unknown]
  - Off label use [Unknown]
  - Intentional product use issue [Unknown]

NARRATIVE: CASE EVENT DATE: 20220101
